FAERS Safety Report 5114925-5 (Version None)
Quarter: 2006Q3

REPORT INFORMATION
  Report Type: 
  Country: None (occurrence: None)
  Receive Date: 20060926
  Receipt Date: 20060915
  Transmission Date: 20061208
  Serious: Yes (Congenital Anomaly, Other)
  Sender: FDA-Public Use
  Company Number: PHFR2006GB02836

PATIENT
  Sex: Male
  Weight: 1.27 kg

DRUGS (1)
  1. GLEEVEC [Suspect]
     Dosage: MATERNAL DOSE: 400MG DAILY
     Route: 064
     Dates: start: 20060320, end: 20060603

REACTIONS (3)
  - DRUG EXPOSURE DURING PREGNANCY [None]
  - MICROGNATHIA [None]
  - PREMATURE BABY [None]
